FAERS Safety Report 20962071 (Version 2)
Quarter: 2022Q2

REPORT INFORMATION
  Report Type: Spontaneous
  Country: US (occurrence: US)
  Receive Date: 20220615
  Receipt Date: 20220624
  Transmission Date: 20220721
  Serious: No
  Sender: FDA-Public Use
  Company Number: US-LUPIN PHARMACEUTICALS INC.-2022-08473

PATIENT
  Sex: Female
  Weight: 54.43 kg

DRUGS (3)
  1. AMLODIPINE BESYLATE [Suspect]
     Active Substance: AMLODIPINE BESYLATE
     Indication: Prophylaxis
     Dosage: 2.5 MILLIGRAM, QD, STARTED TO USE AMLODIPINE BESYLATE TABLET 2.5 MG ABOUT 8 YEARS AGO
     Route: 048
     Dates: end: 202205
  2. ELIQUIS [Concomitant]
     Active Substance: APIXABAN
     Indication: Anticoagulant therapy
     Dosage: 2 MILLIGRAM, AT NIGHT
     Route: 065
  3. CARBIDOPA\LEVODOPA [Concomitant]
     Active Substance: CARBIDOPA\LEVODOPA
     Indication: Product used for unknown indication
     Dosage: UNK, TID, FREQUENCY 1 AND A HALF TABLET 3 TIMES A DAY
     Route: 065

REACTIONS (2)
  - Peripheral swelling [Unknown]
  - Mobility decreased [Unknown]
